FAERS Safety Report 8903460 (Version 1)
Quarter: 2012Q4

REPORT INFORMATION
  Report Type: 
  Country: US (occurrence: US)
  Receive Date: 20121113
  Receipt Date: 20121113
  Transmission Date: 20130627
  Serious: Yes (Hospitalization, Other)
  Sender: FDA-Public Use
  Company Number: PHHY2012US104296

PATIENT
  Age: 21 Year
  Sex: Female

DRUGS (3)
  1. METRONIDAZOLE [Suspect]
  2. LEVOFLOXACIN [Suspect]
     Route: 042
  3. VANCOMYCIN [Suspect]
     Route: 042

REACTIONS (8)
  - Drug reaction with eosinophilia and systemic symptoms [Recovering/Resolving]
  - Pyrexia [Recovering/Resolving]
  - Abdominal pain [Recovering/Resolving]
  - Rash maculo-papular [Recovering/Resolving]
  - Eosinophilia [Recovering/Resolving]
  - Lymphadenopathy [Recovering/Resolving]
  - Hepatomegaly [Recovering/Resolving]
  - Liver function test abnormal [Recovering/Resolving]
